FAERS Safety Report 18523475 (Version 1)
Quarter: 2020Q4

REPORT INFORMATION
  Report Type: Spontaneous
  Country: GB (occurrence: GB)
  Receive Date: 20201119
  Receipt Date: 20201119
  Transmission Date: 20210114
  Serious: Yes (Other)
  Sender: FDA-Public Use
  Company Number: GB-TEVA-2020-GB-1849522

PATIENT
  Age: 54 Year
  Sex: Female
  Weight: 60.32 kg

DRUGS (1)
  1. TEVA UK LEVOTHYROXINE [Suspect]
     Active Substance: LEVOTHYROXINE
     Indication: AUTOIMMUNE HYPOTHYROIDISM
     Dosage: 50 + 25 MCG TABLETS.UNIT DOSE 112.5MCG
     Route: 048
     Dates: start: 20200814, end: 20201012

REACTIONS (3)
  - Physical disability [Recovering/Resolving]
  - Bradyphrenia [Recovering/Resolving]
  - Product substitution issue [Unknown]

NARRATIVE: CASE EVENT DATE: 20200818
